FAERS Safety Report 9246979 (Version 1)
Quarter: 2013Q2

REPORT INFORMATION
  Report Type: Spontaneous
  Country: US (occurrence: US)
  Receive Date: 20130422
  Receipt Date: 20130422
  Transmission Date: 20140414
  Serious: No
  Sender: FDA-Public Use
  Company Number: US-009507513-1304USA007624

PATIENT
  Sex: Female

DRUGS (2)
  1. SAPHRIS [Suspect]
     Indication: BIPOLAR DISORDER
     Dosage: 10 MG, UNK
     Route: 060
     Dates: start: 201302, end: 20130406
  2. ALBUTEROL [Concomitant]

REACTIONS (3)
  - Dyspnoea [Not Recovered/Not Resolved]
  - Thyroid neoplasm [Not Recovered/Not Resolved]
  - Heart rate increased [Not Recovered/Not Resolved]
